FAERS Safety Report 12692833 (Version 1)
Quarter: 2016Q3

REPORT INFORMATION
  Report Type: Spontaneous
  Country: US (occurrence: US)
  Receive Date: 20160829
  Receipt Date: 20160829
  Transmission Date: 20161109
  Serious: Yes (Hospitalization)
  Sender: FDA-Public Use
  Company Number: US-ACCORD-043489

PATIENT
  Age: 63 Year
  Sex: Female

DRUGS (1)
  1. GEMCITABINE/GEMCITABINE HYDROCHLORIDE [Suspect]
     Active Substance: GEMCITABINE\GEMCITABINE HYDROCHLORIDE
     Indication: LUNG ADENOCARCINOMA METASTATIC
     Dosage: THIRD INFUSION
     Route: 042

REACTIONS (5)
  - Breast pain [Unknown]
  - Breast swelling [Recovering/Resolving]
  - Breast tenderness [Recovered/Resolved]
  - Breast enlargement [Unknown]
  - Erythema induratum [Recovered/Resolved]
